FAERS Safety Report 21355361 (Version 1)
Quarter: 2022Q3

REPORT INFORMATION
  Report Type: Spontaneous
  Country: US (occurrence: US)
  Receive Date: 20220920
  Receipt Date: 20220920
  Transmission Date: 20221027
  Serious: Yes (Hospitalization)
  Sender: FDA-Public Use
  Company Number: US-INTRA-CELLULAR THERAPIES, INC.-2022ICT01182

PATIENT
  Age: 4 Decade
  Sex: Male

DRUGS (2)
  1. CAPLYTA [Suspect]
     Active Substance: LUMATEPERONE
     Indication: Schizophrenia
     Dosage: 42 MG, 1X/DAY
     Route: 048
  2. CLOZAPINE [Suspect]
     Active Substance: CLOZAPINE

REACTIONS (2)
  - Schizophrenia [Unknown]
  - Drug interaction [Unknown]
